FAERS Safety Report 8160816-5 (Version None)
Quarter: 2012Q1

REPORT INFORMATION
  Report Type: 
  Country: None (occurrence: None)
  Receive Date: 20120223
  Receipt Date: 20120220
  Transmission Date: 20120608
  Serious: Yes (Death)
  Sender: FDA-Public Use
  Company Number: PHHY2012JP014985

PATIENT
  Age: 57 Year
  Sex: Female

DRUGS (1)
  1. OCTREOTIDE ACETATE [Suspect]
     Indication: GASTROINTESTINAL OBSTRUCTION
     Route: 058

REACTIONS (4)
  - GENERAL PHYSICAL HEALTH DETERIORATION [None]
  - ABDOMINAL DISTENSION [None]
  - MALIGNANT ASCITES [None]
  - VOMITING [None]
